FAERS Safety Report 9720555 (Version 3)
Quarter: 2013Q4

REPORT INFORMATION
  Report Type: Report from Study
  Country: DE (occurrence: DE)
  Receive Date: 20131129
  Receipt Date: 20131205
  Transmission Date: 20140711
  Serious: No
  Sender: FDA-Public Use
  Company Number: DE-ROCHE-1308546

PATIENT
  Age: 54 Year
  Sex: Female
  Weight: 56 kg

DRUGS (20)
  1. RITUXIMAB [Suspect]
     Indication: B-CELL LYMPHOMA
     Route: 042
     Dates: start: 20131007, end: 20131007
  2. RHUPH20/RITUXIMAB [Suspect]
     Indication: B-CELL LYMPHOMA
     Route: 058
     Dates: start: 20131028, end: 20131028
  3. RHUPH20/RITUXIMAB [Suspect]
     Route: 058
     Dates: start: 20131118, end: 20131118
  4. LEVOTHYROXINE [Concomitant]
     Indication: GOITRE
     Route: 048
     Dates: start: 2013
  5. DIMENHYDRINAT [Concomitant]
     Indication: VOMITING
     Route: 042
     Dates: start: 20131007
  6. GRANISETRON [Concomitant]
     Indication: NAUSEA
     Route: 042
     Dates: start: 20131007
  7. GRANISETRON [Concomitant]
     Indication: VOMITING
  8. CLEMASTIN [Concomitant]
     Indication: CHILLS
     Route: 042
     Dates: start: 20131007
  9. BISACODYL [Concomitant]
     Indication: CONSTIPATION
     Dosage: 57.5 DROPS
     Route: 048
     Dates: start: 20131015
  10. APREPITANT [Concomitant]
     Indication: NAUSEA
     Route: 048
     Dates: start: 20131028, end: 20131030
  11. APREPITANT [Concomitant]
     Indication: VOMITING
  12. MACROGOL [Concomitant]
     Indication: CONSTIPATION
     Route: 048
     Dates: start: 20131015
  13. MESNA [Concomitant]
     Route: 042
     Dates: start: 20131007
  14. MESNA [Concomitant]
     Route: 048
     Dates: start: 20131007
  15. PREDNISOLUT [Concomitant]
     Route: 042
     Dates: start: 20131007
  16. RANITIC [Concomitant]
     Route: 042
     Dates: start: 20131007
  17. PREDNISONE [Concomitant]
     Route: 048
     Dates: start: 20131008
  18. PREDNISONE [Concomitant]
     Route: 048
     Dates: start: 20131107, end: 20131112
  19. PARACETAMOL [Concomitant]
     Indication: CHILLS
     Route: 048
     Dates: start: 20131007
  20. PARACETAMOL [Concomitant]
     Indication: PYREXIA

REACTIONS (1)
  - Lymphadenopathy [Recovered/Resolved]
